FAERS Safety Report 19192287 (Version 2)
Quarter: 2021Q3

REPORT INFORMATION
  Report Type: Spontaneous
  Country: US (occurrence: US)
  Receive Date: 20210429
  Receipt Date: 20210727
  Transmission Date: 20211014
  Serious: No
  Sender: FDA-Public Use
  Company Number: US-009507513-2104USA007381

PATIENT
  Sex: Female

DRUGS (3)
  1. KEYTRUDA [Suspect]
     Active Substance: PEMBROLIZUMAB
     Dosage: UNK; FORMULATION: INFUSION
     Dates: start: 20210715
  2. KEYTRUDA [Suspect]
     Active Substance: PEMBROLIZUMAB
     Indication: OVARIAN CANCER
     Dosage: UNK; FORMULATION: INFUSION
     Dates: start: 20210422
  3. LENVATINIB MESYLATE [Suspect]
     Active Substance: LENVATINIB MESYLATE
     Indication: OVARIAN CANCER
     Dosage: 10 MILLIGRAM ONCE DAILY
     Route: 048
     Dates: start: 20210421

REACTIONS (8)
  - Fatigue [Recovered/Resolved]
  - Nervousness [Unknown]
  - Product use in unapproved indication [Unknown]
  - Bone pain [Unknown]
  - Blood pressure increased [Unknown]
  - Blood magnesium decreased [Unknown]
  - Anxiety [Unknown]
  - Fatigue [Recovered/Resolved]

NARRATIVE: CASE EVENT DATE: 2021
